FAERS Safety Report 21980576 (Version 1)
Quarter: 2023Q1

REPORT INFORMATION
  Report Type: Report from Study
  Country: US (occurrence: US)
  Receive Date: 20230211
  Receipt Date: 20230211
  Transmission Date: 20230417
  Serious: No
  Sender: FDA-Public Use
  Company Number: US-002147023-NVSC2023US028298

PATIENT
  Sex: Female

DRUGS (7)
  1. CLOBETASOL [Suspect]
     Active Substance: CLOBETASOL
     Indication: Psoriasis
     Dosage: 0.05 %, BID
     Route: 065
  2. CLOBETASOL [Suspect]
     Active Substance: CLOBETASOL
     Dosage: 0.05 %, BID (FORMULATION: SOLUTION)
     Route: 065
  3. KETOCONAZOLE [Suspect]
     Active Substance: KETOCONAZOLE
     Indication: Psoriasis
     Dosage: 2 % (EVERY OTHER DAY)
     Route: 061
  4. LOSARTAN AND HYDROCHLOROTHIAZIDE [Suspect]
     Active Substance: HYDROCHLOROTHIAZIDE\LOSARTAN POTASSIUM
     Indication: Product used for unknown indication
     Dosage: UNK
     Route: 048
  5. METRONIDAZOLE [Suspect]
     Active Substance: METRONIDAZOLE
     Indication: Product used for unknown indication
     Dosage: 0.75 %, BID
     Route: 061
  6. DOXYCYCLINE [Suspect]
     Active Substance: DOXYCYCLINE
     Indication: Product used for unknown indication
     Dosage: 100 MG, BID
     Route: 048
  7. MOMETASONE [Suspect]
     Active Substance: MOMETASONE
     Indication: Product used for unknown indication
     Dosage: 0.1 %, BID
     Route: 061

REACTIONS (11)
  - Arthritis [Unknown]
  - Joint swelling [Unknown]
  - Peripheral swelling [Unknown]
  - Pruritus [Unknown]
  - Rosacea [Unknown]
  - Erythema [Unknown]
  - Telangiectasia [Unknown]
  - Papule [Unknown]
  - Pustule [Unknown]
  - Arthralgia [Unknown]
  - Pain in extremity [Unknown]
